FAERS Safety Report 4920727-2 (Version None)
Quarter: 2006Q1

REPORT INFORMATION
  Report Type: 
  Country: None (occurrence: None)
  Receive Date: 20060223
  Receipt Date: 19971218
  Transmission Date: 20060701
  Serious: Yes (Hospitalization)
  Sender: FDA-Public Use
  Company Number: US-1997-UP-00400

PATIENT
  Sex: Female

DRUGS (2)
  1. PRAMIPEXOLE DIHYDROCHLORIDE [Suspect]
     Indication: PARKINSON'S DISEASE
     Route: 048
     Dates: start: 19961026, end: 20001106
  2. CONCOMITANT DRUGS ON FILE [Concomitant]

REACTIONS (8)
  - BACK PAIN [None]
  - CLOSTRIDIUM COLITIS [None]
  - COLITIS COLLAGENOUS [None]
  - CYTOMEGALOVIRUS INFECTION [None]
  - DIARRHOEA [None]
  - HYPOTENSION [None]
  - PNEUMOTHORAX [None]
  - WEIGHT DECREASED [None]
